FAERS Safety Report 4903730-8 (Version None)
Quarter: 2006Q1

REPORT INFORMATION
  Report Type: 
  Country: None (occurrence: None)
  Receive Date: 20060203
  Receipt Date: 20060124
  Transmission Date: 20060701
  Serious: Yes (Other)
  Sender: FDA-Public Use
  Company Number: 2006003505

PATIENT
  Age: 13 Year
  Sex: Female
  Weight: 58 kg

DRUGS (2)
  1. ZELDOX (CAPSULES) (ZIPRASIDONE) [Suspect]
     Indication: HALLUCINATION, AUDITORY
     Dosage: 20 MG (20 MG, 1 IN 1 D), ORAL
     Route: 048
     Dates: start: 20050414
  2. RISPERIDONE [Concomitant]

REACTIONS (4)
  - AGITATION [None]
  - IMPULSIVE BEHAVIOUR [None]
  - MOOD ALTERED [None]
  - SELF MUTILATION [None]
